FAERS Safety Report 25706434 (Version 1)
Quarter: 2025Q3

REPORT INFORMATION
  Report Type: Spontaneous
  Country: EU (occurrence: EU)
  Receive Date: 20250820
  Receipt Date: 20250820
  Transmission Date: 20251021
  Serious: Yes (Disabling, Other)
  Sender: MACLEODS
  Company Number: EU-MLMSERVICE-20250804-PI596564-00072-1

PATIENT

DRUGS (3)
  1. LIDOCAINE [Suspect]
     Active Substance: LIDOCAINE
     Indication: Anaesthesia eye
     Route: 065
  2. BUPIVACAINE [Suspect]
     Active Substance: BUPIVACAINE
     Indication: Anaesthesia eye
     Route: 065
  3. HYALURONIDASE [Concomitant]
     Active Substance: HYALURONIDASE
     Route: 065

REACTIONS (6)
  - Retinal artery occlusion [Unknown]
  - Open globe injury [Unknown]
  - Injury [Unknown]
  - Macular ischaemia [Unknown]
  - Vitreous haemorrhage [Recovered/Resolved]
  - Retinal haemorrhage [Recovered/Resolved]
